FAERS Safety Report 5148546-5 (Version None)
Quarter: 2006Q4

REPORT INFORMATION
  Report Type: 
  Country: None (occurrence: None)
  Receive Date: 20061106
  Receipt Date: 20061023
  Transmission Date: 20070319
  Serious: Yes (Hospitalization, Other)
  Sender: FDA-Public Use
  Company Number: 231715

PATIENT
  Age: 64 Year
  Sex: Male

DRUGS (6)
  1. RITUXIMAB(RITUXIMAB) CONC FOR SOLUTION FOR INFUSION [Suspect]
     Indication: DIFFUSE LARGE B-CELL LYMPHOMA
     Dosage: UNK, 2/WEEK/ UNK
  2. CYCLOPHOSPHAMIDE [Suspect]
     Indication: DIFFUSE LARGE B-CELL LYMPHOMA
     Dosage: UNK, 2/WEEK/UNK
  3. DOXORUBICIN HCL [Suspect]
     Indication: DIFFUSE LARGE B-CELL LYMPHOMA
     Dosage: UNK, 2/WEEK, UNK
  4. VINCRISTINE [Suspect]
     Indication: DIFFUSE LARGE B-CELL LYMPHOMA
     Dosage: UNK, 2/WEEK, UNK
  5. PREDNISONE TAB [Suspect]
     Indication: DIFFUSE LARGE B-CELL LYMPHOMA
     Dosage: UNK, 2/WEEK, UNK
  6. G-CSF(FILGRASTIM) [Suspect]
     Indication: DIFFUSE LARGE B-CELL LYMPHOMA
     Dosage: UNK, UNK, UNK

REACTIONS (5)
  - CRYPTOGENIC ORGANISING PNEUMONIA [None]
  - DIFFUSE ALVEOLAR DAMAGE [None]
  - NEUTROPENIA [None]
  - PNEUMONIA FUNGAL [None]
  - WHITE BLOOD CELL COUNT DECREASED [None]
